FAERS Safety Report 4444984-4 (Version None)
Quarter: 2004Q3

REPORT INFORMATION
  Report Type: 
  Country: None (occurrence: None)
  Receive Date: 20040908
  Receipt Date: 20040908
  Transmission Date: 20050211
  Serious: Yes (Disabling)
  Sender: FDA-Public Use
  Company Number: None

PATIENT
  Age: 53 Year
  Sex: Male
  Weight: 119.296 kg

DRUGS (1)
  1. OXYCODONE HCL [Suspect]
     Indication: ARTHRALGIA
     Dosage: 80 MG Q 6 H

REACTIONS (6)
  - CONSTIPATION [None]
  - DEPRESSION [None]
  - DRUG EFFECT DECREASED [None]
  - GASTROINTESTINAL DISORDER [None]
  - NAUSEA [None]
  - TREMOR [None]
